FAERS Safety Report 10402015 (Version 1)
Quarter: 2014Q3

REPORT INFORMATION
  Report Type: Spontaneous
  Country: ES (occurrence: None)
  Receive Date: 20140820
  Receipt Date: 20140820
  Transmission Date: 20150326
  Serious: Yes (Other)
  Sender: FDA-Public Use
  Company Number: 2014-20160

PATIENT
  Sex: Female
  Weight: 58 kg

DRUGS (5)
  1. VEGF TRAP-EYE OR LASER TREATMENT (CODE NOT BROKEN) [Suspect]
     Active Substance: AFLIBERCEPT
     Indication: DIABETIC RETINAL OEDEMA
     Route: 031
     Dates: start: 20111125
  2. LOSARTAN [Concomitant]
     Active Substance: LOSARTAN
  3. CRESTOR [Concomitant]
     Active Substance: ROSUVASTATIN CALCIUM
  4. LANTUS [Concomitant]
     Active Substance: INSULIN GLARGINE
  5. CYMBALTA [Concomitant]
     Active Substance: DULOXETINE HYDROCHLORIDE

REACTIONS (1)
  - Injection site injury [None]

NARRATIVE: CASE EVENT DATE: 20120803
